FAERS Safety Report 8970703 (Version 1)
Quarter: 2012Q4

REPORT INFORMATION
  Report Type: 
  Country: US (occurrence: US)
  Receive Date: 20121218
  Receipt Date: 20121218
  Transmission Date: 20130627
  Serious: No
  Sender: FDA-Public Use
  Company Number: US-BRISTOL-MYERS SQUIBB COMPANY-16511974

PATIENT
  Sex: Female

DRUGS (3)
  1. ABILIFY [Suspect]
     Indication: BIPOLAR DISORDER
     Dosage: Dosage was decreased the increased back to 15mg
  2. IMIPRAMINE [Concomitant]
  3. LITHIUM [Concomitant]

REACTIONS (2)
  - Weight increased [Unknown]
  - Dyskinesia [Not Recovered/Not Resolved]
